FAERS Safety Report 6474619-0 (Version None)
Quarter: 2009Q4

REPORT INFORMATION
  Report Type: 
  Country: None (occurrence: None)
  Receive Date: 20091204
  Receipt Date: 20090115
  Transmission Date: 20100525
  Serious: Yes (Hospitalization)
  Sender: FDA-Public Use
  Company Number: DE-ELI_LILLY_AND_COMPANY-DE200901002601

PATIENT
  Sex: Male
  Weight: 78 kg

DRUGS (12)
  1. GEMZAR [Suspect]
     Indication: BILE DUCT CANCER
     Dosage: 1951 MG, OTHER (1951MG ON D1, D8 AND D15 IN 250ML 0.9% NACL OVER CIRCA 1 HOUR)
     Route: 042
  2. GEMZAR [Suspect]
     Dosage: 1951 MG, OTHER (1951MG IN 250ML 0.9% NACL IN 1 HOUR)
     Route: 042
  3. RAMIPRIL [Concomitant]
     Dosage: 5 MG, 2/D
     Route: 048
  4. BISOPROLOL [Concomitant]
     Dosage: 5 MG, 2/D
     Route: 048
  5. AMLODIPINE [Concomitant]
     Dosage: 1 D/F, DAILY (1/D)
     Route: 065
  6. ASPIRIN [Concomitant]
     Dosage: 1 D/F, DAILY (1/D)
     Route: 065
  7. CAPECITABINE [Concomitant]
     Dosage: UNK, UNKNOWN
     Route: 065
  8. METFORMIN HCL [Concomitant]
     Dosage: 1 D/F, 2/D
     Route: 065
  9. OXALIPLATIN [Concomitant]
     Dosage: UNK, UNKNOWN
     Route: 065
  10. PANTOPRAZOLE [Concomitant]
     Dosage: 1 D/F, DAILY (1/D)
     Route: 065
  11. SIMVASTATIN [Concomitant]
     Dosage: 20 MG, DAILY (1/D)
     Route: 065
  12. SPIRONOLACTONE [Concomitant]
     Dosage: 1 D/F, DAILY (1/D)
     Route: 065

REACTIONS (2)
  - ACUTE MYOCARDIAL INFARCTION [None]
  - ANGINA PECTORIS [None]
